FAERS Safety Report 7397232-X (Version None)
Quarter: 2011Q2

REPORT INFORMATION
  Report Type: 
  Country: None (occurrence: None)
  Receive Date: 20110406
  Receipt Date: 20110324
  Transmission Date: 20111010
  Serious: Yes (Hospitalization, Other)
  Sender: FDA-Public Use
  Company Number: US-ACTELION-A-US2011-46060

PATIENT

DRUGS (2)
  1. REVATIO [Concomitant]
  2. TRACLEER [Suspect]
     Indication: PULMONARY ARTERIAL HYPERTENSION
     Dosage: UNK
     Route: 048
     Dates: start: 20050810

REACTIONS (5)
  - HIP FRACTURE [None]
  - HIP SURGERY [None]
  - FALL [None]
  - CATHETERISATION CARDIAC [None]
  - GASTROINTESTINAL HAEMORRHAGE [None]
